FAERS Safety Report 10682745 (Version 1)
Quarter: 2014Q4

REPORT INFORMATION
  Report Type: Spontaneous
  Country: US (occurrence: US)
  Receive Date: 20141230
  Receipt Date: 20141230
  Transmission Date: 20150529
  Serious: Yes (Other)
  Sender: FDA-Public Use
  Company Number: US-RECKITT BENCKISER PHARMACEUTICAL, INC-RB-74491-2014

PATIENT
  Age: 28 Year
  Sex: Female

DRUGS (2)
  1. BUPRENORPHINE GENERIC TAB [Suspect]
     Active Substance: BUPRENORPHINE
     Indication: DRUG DEPENDENCE
     Dosage: CUTTING 8MG TABLET AND TAKING THROUGH THE DAY, FOR ONE YEAR
     Route: 060
     Dates: start: 201312, end: 20141218
  2. SUBOXONE [Suspect]
     Active Substance: BUPRENORPHINE HYDROCHLORIDE\NALOXONE HYDROCHLORIDE
     Indication: DRUG DEPENDENCE
     Dosage: 8 MG, ONCE
     Route: 060

REACTIONS (10)
  - Facial bones fracture [Recovered/Resolved]
  - Road traffic accident [Recovered/Resolved]
  - Sports injury [Recovered/Resolved]
  - Palpitations [Not Recovered/Not Resolved]
  - Wrong technique in drug usage process [Recovered/Resolved]
  - Irritability [Not Recovered/Not Resolved]
  - Chest pain [Recovered/Resolved]
  - Hand fracture [Recovering/Resolving]
  - Disorientation [Not Recovered/Not Resolved]
  - Dizziness [Not Recovered/Not Resolved]

NARRATIVE: CASE EVENT DATE: 201312
